FAERS Safety Report 4481331-6 (Version None)
Quarter: 2004Q4

REPORT INFORMATION
  Report Type: 
  Country: None (occurrence: None)
  Receive Date: 20041021
  Receipt Date: 20040819
  Transmission Date: 20050328
  Serious: Yes (Death)
  Sender: FDA-Public Use
  Company Number: US-GLAXOSMITHKLINE-A0523743A

PATIENT
  Age: 43 Year
  Sex: Male

DRUGS (2)
  1. PAXIL [Suspect]
     Indication: DEPRESSION
     Dosage: 25MG PER DAY
     Route: 048
     Dates: start: 20030522
  2. PRILOSEC [Concomitant]

REACTIONS (5)
  - ANXIETY [None]
  - COMPLETED SUICIDE [None]
  - INJURY ASPHYXIATION [None]
  - INSOMNIA [None]
  - STRESS SYMPTOMS [None]
